FAERS Safety Report 15351816 (Version 2)
Quarter: 2018Q4

REPORT INFORMATION
  Report Type: Spontaneous
  Country: US (occurrence: US)
  Receive Date: 20180905
  Receipt Date: 20181031
  Transmission Date: 20190204
  Serious: Yes (Death, Hospitalization, Other)
  Sender: FDA-Public Use
  Company Number: US-PURDUE-USA-2018-0144402

PATIENT
  Age: 0 Day
  Sex: Female
  Weight: 11.6 kg

DRUGS (1)
  1. OXYCODONE HYDROCHLORIDE (SIMILAR TO NDA 22-272) [Suspect]
     Active Substance: OXYCODONE HYDROCHLORIDE
     Indication: ACCIDENTAL EXPOSURE TO PRODUCT BY CHILD
     Dosage: UNK
     Route: 048
     Dates: start: 201807

REACTIONS (10)
  - Drug withdrawal syndrome neonatal [Recovered/Resolved]
  - Unresponsive to stimuli [Unknown]
  - Nasal congestion [Unknown]
  - Rhinorrhoea [Unknown]
  - Cough [Unknown]
  - Victim of homicide [Fatal]
  - Toxicity to various agents [Fatal]
  - Vomiting [Unknown]
  - Drug dependence [Recovered/Resolved]
  - Respiratory arrest [Unknown]

NARRATIVE: CASE EVENT DATE: 20170103
